FAERS Safety Report 11141024 (Version 1)
Quarter: 2015Q2

REPORT INFORMATION
  Report Type: Spontaneous
  Country: US (occurrence: US)
  Receive Date: 20150525
  Receipt Date: 20150525
  Transmission Date: 20150821
  Serious: No
  Sender: FDA-Public Use
  Company Number: US-JNJFOC-20121015616

PATIENT

DRUGS (1)
  1. RISPERIDONE. [Suspect]
     Active Substance: RISPERIDONE
     Indication: DEMENTIA ALZHEIMER^S TYPE
     Dosage: INITIATED AT A DOSE OF 0.25 MG TO 0.5 MG/DAY AND COULD BE INCREASED UPTO 3 MG/DAY
     Route: 065

REACTIONS (2)
  - Akathisia [Unknown]
  - Restlessness [Unknown]
